FAERS Safety Report 10061718 (Version 3)
Quarter: 2015Q2

REPORT INFORMATION
  Report Type: Spontaneous
  Country: US (occurrence: US)
  Receive Date: 20140407
  Receipt Date: 20150622
  Transmission Date: 20150821
  Serious: Yes (Hospitalization)
  Sender: FDA-Public Use
  Company Number: US-SA-2014SA037932

PATIENT
  Age: 55 Year
  Sex: Male

DRUGS (4)
  1. NOVOLOG [Concomitant]
     Active Substance: INSULIN ASPART
  2. SOLOSTAR [Concomitant]
     Active Substance: DEVICE
     Indication: DEVICE THERAPY
  3. LANTUS SOLOSTAR [Suspect]
     Active Substance: INSULIN GLARGINE
     Indication: TYPE 1 DIABETES MELLITUS
     Dosage: DOSE: DIVIDES IN AM AND PM DEPENDING ON BLOOD SUGAR
     Route: 065
  4. LANTUS SOLOSTAR [Suspect]
     Active Substance: INSULIN GLARGINE
     Indication: TYPE 1 DIABETES MELLITUS
     Dosage: DOSE: DIVIDES IN AM AND PM DEPENDING ON BLOOD SUGAR
     Route: 065

REACTIONS (6)
  - Pain [Unknown]
  - Drug administration error [Unknown]
  - Glaucoma [Unknown]
  - Visual impairment [Unknown]
  - Blood glucose increased [Unknown]
  - Renal transplant [Unknown]

NARRATIVE: CASE EVENT DATE: 2012
